FAERS Safety Report 25818864 (Version 1)
Quarter: 2025Q3

REPORT INFORMATION
  Report Type: Spontaneous
  Country: US (occurrence: US)
  Receive Date: 20250918
  Receipt Date: 20250918
  Transmission Date: 20251020
  Serious: No
  Sender: MALLINCKRODT
  Company Number: US-MALLINCKRODT-MNK202505597

PATIENT
  Sex: Female

DRUGS (11)
  1. CORTICOTROPIN [Suspect]
     Active Substance: CORTICOTROPIN
     Indication: Product used for unknown indication
     Dosage: 80 UNITS
     Route: 058
  2. SYMBICORT [Concomitant]
     Active Substance: BUDESONIDE\FORMOTEROL FUMARATE DIHYDRATE
  3. TEGRETOL [Concomitant]
     Active Substance: CARBAMAZEPINE
  4. AMLODIPINE BESYLATE [Concomitant]
     Active Substance: AMLODIPINE BESYLATE
  5. AJOVY [Concomitant]
     Active Substance: FREMANEZUMAB-VFRM
  6. MIRENA [Concomitant]
     Active Substance: LEVONORGESTREL
  7. OMEPRAZOLE [Concomitant]
     Active Substance: OMEPRAZOLE
  8. KESIMPTA [Concomitant]
     Active Substance: OFATUMUMAB
  9. TOPAMAX [Concomitant]
     Active Substance: TOPIRAMATE
  10. LYRICA [Concomitant]
     Active Substance: PREGABALIN
  11. LEVOTHYROXINE SODIUM [Concomitant]
     Active Substance: LEVOTHYROXINE SODIUM

REACTIONS (4)
  - Condition aggravated [Not Recovered/Not Resolved]
  - Influenza like illness [Unknown]
  - Neuralgia [Unknown]
  - Muscle spasms [Unknown]
